FAERS Safety Report 4294882-4 (Version None)
Quarter: 2004Q1

REPORT INFORMATION
  Report Type: 
  Country: None (occurrence: None)
  Receive Date: 20040216
  Receipt Date: 20030207
  Transmission Date: 20041129
  Serious: No
  Sender: FDA-Public Use
  Company Number: US-GLAXOSMITHKLINE-A0395883A

PATIENT
  Age: 45 Year
  Sex: Female

DRUGS (6)
  1. LAMICTAL [Suspect]
     Dosage: 300MG TWICE PER DAY
     Route: 048
  2. KLONOPIN [Suspect]
     Dosage: 2MG TWICE PER DAY
     Route: 065
  3. EFFEXOR [Concomitant]
     Dosage: 300MG AT NIGHT
     Route: 065
  4. VICODIN [Concomitant]
     Indication: NECK PAIN
     Route: 065
  5. MUSCLE RELAXANT [Concomitant]
     Indication: NECK PAIN
  6. ANTI INFLAMMATORY DRUG [Concomitant]
     Indication: NECK PAIN

REACTIONS (1)
  - FATIGUE [None]
